FAERS Safety Report 25602606 (Version 3)
Quarter: 2025Q3

REPORT INFORMATION
  Report Type: Spontaneous
  Country: US (occurrence: US)
  Receive Date: 20250724
  Receipt Date: 20250919
  Transmission Date: 20251021
  Serious: No
  Sender: ROCHE
  Company Number: US-ROCHE-10000338303

PATIENT
  Sex: Female

DRUGS (3)
  1. ACTEMRA ACTPEN [Suspect]
     Active Substance: TOCILIZUMAB
     Indication: Rheumatoid arthritis
     Route: 058
     Dates: start: 202303
  2. ASPIRIN [Concomitant]
     Active Substance: ASPIRIN
  3. RASUVO [Concomitant]
     Active Substance: METHOTREXATE SODIUM

REACTIONS (1)
  - Paranasal sinus hypersecretion [Unknown]
